FAERS Safety Report 8544727-9 (Version None)
Quarter: 2012Q3

REPORT INFORMATION
  Report Type: 
  Country: None (occurrence: None)
  Receive Date: 20120727
  Receipt Date: 20120718
  Transmission Date: 20120928
  Serious: Yes (Life-Threatening, Hospitalization)
  Sender: FDA-Public Use
  Company Number: JP-BRISTOL-MYERS SQUIBB COMPANY-16709412

PATIENT
  Age: 84 Year
  Sex: Female
  Weight: 36 kg

DRUGS (23)
  1. KETOPROFEN [Concomitant]
     Indication: RHEUMATOID ARTHRITIS
  2. LANSOPRAZOLE [Concomitant]
     Dosage: TAB
  3. ACTARIT [Concomitant]
     Indication: RHEUMATOID ARTHRITIS
  4. SULFAMETHOXAZOLE AND TRIMETHOPRIM [Concomitant]
     Dosage: TAB
  5. ORENCIA [Suspect]
     Indication: RHEUMATOID ARTHRITIS
     Dosage: 6MAY,20MAY,1JUL,28JUL,19AUG.16SEP,13OCT11
     Route: 041
     Dates: start: 20110422, end: 20120709
  6. CANDESARTAN CILEXETIL [Suspect]
     Dosage: TAB
     Route: 048
     Dates: end: 20120709
  7. PREDNISOLONE [Concomitant]
     Indication: RHEUMATOID ARTHRITIS
     Dosage: TAB
     Route: 048
     Dates: end: 20110501
  8. MUCOSTA [Concomitant]
     Dosage: TAB
  9. ASPIRIN [Concomitant]
     Dosage: TAB
  10. LYRICA [Concomitant]
     Dosage: CAPS
  11. PROGRAF [Suspect]
     Indication: RHEUMATOID ARTHRITIS
     Dates: end: 20120606
  12. BUCILLAMINE [Concomitant]
  13. PREDNISOLONE [Concomitant]
     Indication: RHEUMATOID ARTHRITIS
     Dosage: TAB.1MG:UNK-01MAY11 9MG:02MAY11-18MAY11 6MG:19MAY11-25MAY11 4MG:26MAY11-04JUL11 2MG:05JUL11-ONGN
     Route: 048
  14. LOXONIN [Concomitant]
     Indication: RHEUMATOID ARTHRITIS
     Dosage: TAB
  15. MAGLAX [Concomitant]
     Dosage: TAB
  16. LIPITOR [Concomitant]
     Dosage: TAB
  17. SULFASALAZINE [Concomitant]
     Indication: RHEUMATOID ARTHRITIS
  18. ESTAZOLAM [Concomitant]
     Dosage: TAB
  19. CELECOXIB [Concomitant]
     Indication: RHEUMATOID ARTHRITIS
     Dosage: TAB
  20. DEPAS [Concomitant]
     Dosage: TAB
  21. BASEN [Concomitant]
     Dosage: TAB
  22. LASIX [Concomitant]
     Dosage: TAB
  23. ALENDRONATE SODIUM [Concomitant]
     Dosage: TAB

REACTIONS (4)
  - ALTERED STATE OF CONSCIOUSNESS [None]
  - HYPONATRAEMIA [None]
  - CARDIAC FAILURE [None]
  - DIARRHOEA [None]
